FAERS Safety Report 11686488 (Version 8)
Quarter: 2020Q2

REPORT INFORMATION
  Report Type: Spontaneous
  Country: FR (occurrence: FR)
  Receive Date: 20151030
  Receipt Date: 20200608
  Transmission Date: 20200713
  Serious: Yes (Death, Hospitalization, Other)
  Sender: FDA-Public Use
  Company Number: FR-009507513-1510FRA013864

PATIENT
  Age: 71 Year
  Sex: Male

DRUGS (33)
  1. ZOCOR [Suspect]
     Active Substance: SIMVASTATIN
     Dosage: 20 MILLIGRAM, QD (1/DAY)
     Route: 048
  2. POLYETHYLENE GLYCOL 3350. [Suspect]
     Active Substance: POLYETHYLENE GLYCOL 3350
     Dosage: 2 DF, QD (1/DAY)
     Route: 065
  3. CELEBREX [Suspect]
     Active Substance: CELECOXIB
     Dosage: UNK
     Route: 065
  4. TRIHEXYPHENIDYL HYDROCHLORIDE. [Suspect]
     Active Substance: TRIHEXYPHENIDYL HYDROCHLORIDE
     Dosage: 1 MG, QD
     Route: 048
  5. URBANYL [Suspect]
     Active Substance: CLOBAZAM
     Dosage: 30 MILLIGRAM, TID
     Route: 048
  6. LASIX [Suspect]
     Active Substance: FUROSEMIDE
     Dosage: 40 MG, QD
     Route: 048
  7. ESOMEPRAZOLE MAGNESIUM. [Suspect]
     Active Substance: ESOMEPRAZOLE MAGNESIUM
     Dosage: 20 MG, QD
     Route: 048
  8. ASPEGIC [ACETYLSALICYLATE LYSINE] [Suspect]
     Active Substance: ASPIRIN DL-LYSINE
     Dosage: 250 MILLIGRAM, QD (1/DAY)
     Route: 048
  9. PREDNAZOLINE [Concomitant]
     Active Substance: PREDNAZOLINE
     Dosage: 1 PUFF, QD
     Route: 045
  10. SEREVENT DISKUS [Suspect]
     Active Substance: SALMETEROL XINAFOATE
     Dosage: 2 DF, BID
     Route: 065
  11. ASPEGIC [ACETYLSALICYLATE LYSINE] [Suspect]
     Active Substance: ASPIRIN DL-LYSINE
     Dosage: 20 MILLIGRAM, QD
     Route: 048
  12. OXYGEN. [Concomitant]
     Active Substance: OXYGEN
     Dosage: UNK
  13. PROPRANOLOL HYDROCHLORIDE. [Suspect]
     Active Substance: PROPRANOLOL HYDROCHLORIDE
     Dosage: 20 MG, QD (1/DAY)
     Route: 048
  14. TRINITRINE [Suspect]
     Active Substance: NITROGLYCERIN
     Dosage: UNK
  15. DIACEREIN [Suspect]
     Active Substance: DIACEREIN
     Dosage: 100 MG, BID
     Route: 048
  16. URBANYL [Suspect]
     Active Substance: CLOBAZAM
     Dosage: 10 MG, 3X/DAY (ONCE EVERY 8HOURS)
     Route: 048
  17. ACETAMINOPHEN. [Suspect]
     Active Substance: ACETAMINOPHEN
     Dosage: 1000 MG, 2X/DAY (ONCE EVERY 12HOURS)
     Route: 048
  18. ACETAMINOPHEN. [Suspect]
     Active Substance: ACETAMINOPHEN
     Dosage: 100 MG, BID (ONCE EVERY 12HOURS)
     Route: 048
  19. RIVOTRIL [Suspect]
     Active Substance: CLONAZEPAM
     Dosage: 4 MG,QD
     Route: 048
  20. SEREVENT DISKUS [Suspect]
     Active Substance: SALMETEROL XINAFOATE
     Indication: PRODUCT USED FOR UNKNOWN INDICATION
     Dosage: 1 DF,BID (1 PUFF) (ONCE EVERY 12HOURS)
     Route: 045
  21. TRINITRINE [Suspect]
     Active Substance: NITROGLYCERIN
     Dosage: 10 MILLIGRAM, DAILY
     Route: 048
  22. DIACEREIN [Suspect]
     Active Substance: DIACEREIN
     Dosage: 50 MG, 2X/DAY (ONCE EVERY 12HOURS)
     Route: 048
  23. ISOPTINE [Suspect]
     Active Substance: VERAPAMIL HYDROCHLORIDE
     Dosage: 240 MG, QD (1/DAY)
     Route: 048
  24. OMEPRAZOLE. [Suspect]
     Active Substance: OMEPRAZOLE
     Dosage: 20 MG, DAILY
     Route: 048
  25. ZOPICLONE [Suspect]
     Active Substance: ZOPICLONE
     Dosage: 15 MG,QD
     Route: 048
  26. ALTACE [Suspect]
     Active Substance: RAMIPRIL
     Dosage: 5 MG,QD
     Route: 048
  27. MIANSERIN HYDROCHLORIDE [Suspect]
     Active Substance: MIANSERIN HYDROCHLORIDE
     Dosage: 60 MG,QD
     Route: 048
  28. VENTOLINE (ALBUTEROL SULFATE) [Suspect]
     Active Substance: ALBUTEROL SULFATE
     Dosage: UNK
     Route: 045
  29. ACETAMINOPHEN. [Suspect]
     Active Substance: ACETAMINOPHEN
     Dosage: 200 MG, BID
     Route: 048
  30. PIPAMPERONE [Suspect]
     Active Substance: PIPAMPERONE
     Dosage: 20 MILLIGRAM, QD
     Route: 048
  31. OMEPRAZOLE MAGNESIUM. [Suspect]
     Active Substance: OMEPRAZOLE MAGNESIUM
     Dosage: 20 MG,QD
     Route: 048
  32. TRINITRINE [Suspect]
     Active Substance: NITROGLYCERIN
     Dosage: 10 MILLIGRAM, QD
     Route: 065
  33. DETURGYLONE [OXYMETAZOLINE HYDROCHLORIDE\PREDNISOLONE SODIUM PHOSPHATE] [Suspect]
     Active Substance: OXYMETAZOLINE HYDROCHLORIDE\PREDNISOLONE SODIUM PHOSPHATE
     Dosage: 1 DF, QD
     Route: 045

REACTIONS (13)
  - Respiratory distress [Fatal]
  - Cerebral artery thrombosis [Fatal]
  - Facial paralysis [Fatal]
  - Disease recurrence [Fatal]
  - Ischaemic stroke [Fatal]
  - Product use issue [Unknown]
  - Brain scan abnormal [Fatal]
  - Respiratory failure [Fatal]
  - Hemiplegia [Fatal]
  - Off label use [Fatal]
  - Cerebrovascular accident [Fatal]
  - Nausea [Fatal]
  - Areflexia [Fatal]
